FAERS Safety Report 11191008 (Version 2)
Quarter: 2016Q2

REPORT INFORMATION
  Report Type: Report from Study
  Country: JP (occurrence: JP)
  Receive Date: 20150615
  Receipt Date: 20160503
  Transmission Date: 20160815
  Serious: Yes (Hospitalization, Disabling)
  Sender: FDA-Public Use
  Company Number: JP-B.I. PHARMACEUTICALS,INC./RIDGEFIELD-2015-BI-32002GD

PATIENT
  Age: 87 Year
  Sex: Female

DRUGS (1)
  1. PRADAXA [Suspect]
     Active Substance: DABIGATRAN ETEXILATE MESYLATE
     Indication: PRODUCT USED FOR UNKNOWN INDICATION
     Dosage: 150 MG
     Route: 048

REACTIONS (1)
  - Embolic stroke [Recovered/Resolved with Sequelae]

NARRATIVE: CASE EVENT DATE: 20130522
